FAERS Safety Report 5455794-3 (Version None)
Quarter: 2007Q3

REPORT INFORMATION
  Report Type: 
  Country: None (occurrence: None)
  Receive Date: 20070918
  Receipt Date: 20070702
  Transmission Date: 20080115
  Serious: Yes (Other)
  Sender: FDA-Public Use
  Company Number: US-ASTRAZENECA-2006UW22630

PATIENT
  Sex: Female
  Weight: 85.9 kg

DRUGS (4)
  1. SEROQUEL [Suspect]
     Indication: INSOMNIA
     Route: 048
     Dates: start: 20030101
  2. SEROQUEL [Suspect]
     Indication: DEPRESSION
     Route: 048
     Dates: start: 20030101
  3. HALDOL [Concomitant]
  4. METHADONE HCL [Concomitant]
     Dates: start: 19971001

REACTIONS (2)
  - HYPERGLYCAEMIA [None]
  - PANCREATITIS [None]
